FAERS Safety Report 5129902-8 (Version None)
Quarter: 2006Q4

REPORT INFORMATION
  Report Type: 
  Country: None (occurrence: None)
  Receive Date: 20061013
  Receipt Date: 20061003
  Transmission Date: 20070319
  Serious: Yes (Life-Threatening)
  Sender: FDA-Public Use
  Company Number: FR-2006-030008

PATIENT
  Age: 82 Year
  Sex: Female

DRUGS (2)
  1. SOTALOL HYDROCHLORIDE [Suspect]
     Dosage: 80 MG, PER DAY, ORAL
     Route: 048
     Dates: end: 20060719
  2. SERECOR (HYDROQUINIDINE HYDROCHLORIDE) [Suspect]
     Dosage: 300 MG, PER DAY, ORAL
     Route: 048
     Dates: end: 20060719

REACTIONS (3)
  - ACUTE CORONARY SYNDROME [None]
  - ACUTE PULMONARY OEDEMA [None]
  - DRUG INTERACTION [None]
